FAERS Safety Report 5223870-6 (Version None)
Quarter: 2007Q1

REPORT INFORMATION
  Report Type: 
  Country: None (occurrence: None)
  Receive Date: 20070126
  Receipt Date: 20070110
  Transmission Date: 20070707
  Serious: Yes (Other)
  Sender: FDA-Public Use
  Company Number: 2007BL000097

PATIENT
  Age: 57 Year
  Sex: Female

DRUGS (3)
  1. PREDNISOLONE SODIUM PHOSPHATE [Suspect]
     Indication: RENAL TRANSPLANT
  2. AZATHIOPRINE [Suspect]
     Indication: RENAL TRANSPLANT
  3. CYCLOSPORINE [Suspect]
     Indication: RENAL TRANSPLANT

REACTIONS (4)
  - BASAL CELL CARCINOMA [None]
  - BOWEN'S DISEASE [None]
  - LENTIGO MALIGNA STAGE UNSPECIFIED [None]
  - SQUAMOUS CELL CARCINOMA [None]
